FAERS Safety Report 5910670-4 (Version None)
Quarter: 2008Q4

REPORT INFORMATION
  Report Type: 
  Country: None (occurrence: None)
  Receive Date: 20081007
  Receipt Date: 20080925
  Transmission Date: 20090506
  Serious: Yes (Death)
  Sender: FDA-Public Use
  Company Number: DE-ROCHE-585138

PATIENT

DRUGS (1)
  1. CAPECITABINE [Suspect]
     Dosage: PATIENT RECEIVED 2ND CYCLE ON 25 APRIL 2007
     Route: 065

REACTIONS (1)
  - DEATH [None]
